FAERS Safety Report 8595902 (Version 2)
Quarter: 2012Q4

REPORT INFORMATION
  Report Type: 
  Country: US (occurrence: US)
  Receive Date: 20120605
  Receipt Date: 20120925
  Transmission Date: 20130627
  Serious: No
  Sender: FDA-Public Use
  Company Number: US-ASTRAZENECA-2012SE35961

PATIENT
  Age: 35 Year
  Sex: Female

DRUGS (4)
  1. NEXIUM [Suspect]
     Indication: GASTROOESOPHAGEAL REFLUX DISEASE
     Route: 048
     Dates: start: 2005, end: 20110202
  2. NEXIUM [Suspect]
     Indication: GASTROOESOPHAGEAL REFLUX DISEASE
     Route: 048
     Dates: start: 200507
  3. LORTAB [Concomitant]
     Dosage: 7.5 MG EVERY 8-10 HRS PRN
     Route: 048
     Dates: start: 200507
  4. SKELAXIN [Concomitant]
     Dosage: 800 MG TWICE A DAY AND PRN
     Route: 048
     Dates: start: 200507

REACTIONS (5)
  - Osteoporosis [Unknown]
  - Bone density decreased [Unknown]
  - Multiple fractures [Unknown]
  - Osteogenesis imperfecta [Unknown]
  - Exostosis [Unknown]
